FAERS Safety Report 18177718 (Version 1)
Quarter: 2020Q3

REPORT INFORMATION
  Report Type: Spontaneous
  Country: US (occurrence: US)
  Receive Date: 20200820
  Receipt Date: 20200820
  Transmission Date: 20201103
  Serious: Yes (Life-Threatening, Hospitalization)
  Sender: FDA-Public Use
  Company Number: US-MYLANLABS-2020M1072538

PATIENT
  Age: 80 Year
  Sex: Male

DRUGS (5)
  1. IMMUNOGLOBULIN                     /00025201/ [Suspect]
     Active Substance: HUMAN IMMUNOGLOBULIN G
     Indication: MYASTHENIA GRAVIS
     Route: 042
  2. AZATHIOPRINE. [Suspect]
     Active Substance: AZATHIOPRINE
     Indication: MYASTHENIA GRAVIS
     Route: 065
  3. AZITHROMYCIN ANHYDROUS. [Suspect]
     Active Substance: AZITHROMYCIN ANHYDROUS
     Indication: COVID-19
     Route: 065
  4. IMMUNOGLOBULIN                     /00025201/ [Suspect]
     Active Substance: HUMAN IMMUNOGLOBULIN G
     Dosage: HE RECEIVED IMMUNE?GLOBULIN DAILY FOR 5 DAYS
     Route: 042
  5. HYDROXYCHLOROQUINE [Suspect]
     Active Substance: HYDROXYCHLOROQUINE
     Indication: COVID-19
     Route: 065

REACTIONS (7)
  - Impaired self-care [Unknown]
  - Off label use [Unknown]
  - Myasthenia gravis crisis [Unknown]
  - Mental status changes [Unknown]
  - Aspiration [Unknown]
  - COVID-19 [Not Recovered/Not Resolved]
  - Respiratory failure [Recovering/Resolving]
